FAERS Safety Report 7798602-8 (Version None)
Quarter: 2011Q4

REPORT INFORMATION
  Report Type: 
  Country: None (occurrence: None)
  Receive Date: 20111005
  Receipt Date: 20110926
  Transmission Date: 20120403
  Serious: Yes (Other)
  Sender: FDA-Public Use
  Company Number: US-ASTRAZENECA-2011SE27378

PATIENT
  Age: 20806 Day
  Sex: Female

DRUGS (9)
  1. SIMVASTATIN [Concomitant]
  2. LISINOPRIL [Concomitant]
  3. ZOLOFT [Concomitant]
  4. WELLBUTRIN [Concomitant]
  5. AMLODIPINE [Concomitant]
  6. NEXIUM [Suspect]
     Route: 048
  7. HYDROCHLOROTHIAZIDE [Concomitant]
  8. METFORMIN HCL [Concomitant]
  9. XANAX [Concomitant]

REACTIONS (4)
  - UPPER LIMB FRACTURE [None]
  - CONTUSION [None]
  - EXCORIATION [None]
  - FALL [None]
